FAERS Safety Report 7941324-0 (Version None)
Quarter: 2011Q4

REPORT INFORMATION
  Report Type: 
  Country: None (occurrence: None)
  Receive Date: 20111128
  Receipt Date: 20111118
  Transmission Date: 20120403
  Serious: Yes (Other)
  Sender: FDA-Public Use
  Company Number: BR-ABBOTT-11P-020-0875722-00

PATIENT
  Sex: Female
  Weight: 50 kg

DRUGS (2)
  1. HUMIRA [Suspect]
     Indication: RHEUMATOID ARTHRITIS
     Route: 058
     Dates: start: 20090911
  2. HUMIRA [Suspect]

REACTIONS (3)
  - INTESTINAL PERFORATION [None]
  - HAEMORRHAGE [None]
  - ULCER [None]
